FAERS Safety Report 6029845-1 (Version None)
Quarter: 2008Q4

REPORT INFORMATION
  Report Type: 
  Country: None (occurrence: None)
  Receive Date: 20081222
  Receipt Date: 20081001
  Transmission Date: 20090506
  Serious: No
  Sender: FDA-Public Use
  Company Number: US-WYE-H06207008

PATIENT
  Sex: Female

DRUGS (1)
  1. PRISTIQ [Suspect]
     Indication: DEPRESSION
     Dosage: ^CUT EACH PILL AND TAKE ONLY HALF^
     Dates: start: 20080924

REACTIONS (2)
  - ANXIETY [None]
  - WRONG TECHNIQUE IN DRUG USAGE PROCESS [None]
